FAERS Safety Report 19055280 (Version 1)
Quarter: 2021Q1

REPORT INFORMATION
  Report Type: Spontaneous
  Country: CA (occurrence: CA)
  Receive Date: 20210324
  Receipt Date: 20210324
  Transmission Date: 20210420
  Serious: Yes (Other)
  Sender: FDA-Public Use
  Company Number: CA-GLAXOSMITHKLINE-CA2021AMR066092

PATIENT
  Sex: Male

DRUGS (2)
  1. BENLYSTA [Suspect]
     Active Substance: BELIMUMAB
     Indication: SYSTEMIC LUPUS ERYTHEMATOSUS
     Dosage: 100 MG/KG EVERY 4 WEEKS
  2. BENLYSTA [Suspect]
     Active Substance: BELIMUMAB
     Dosage: 100 MG/KG EVERY 4 WEEKS

REACTIONS (1)
  - Pulmonary oedema [Recovered/Resolved]
